FAERS Safety Report 5874545-1 (Version None)
Quarter: 2008Q3

REPORT INFORMATION
  Report Type: 
  Country: None (occurrence: None)
  Receive Date: 20080909
  Receipt Date: 20080902
  Transmission Date: 20090109
  Serious: Yes (Other)
  Sender: FDA-Public Use
  Company Number: PHHY2008BR20316

PATIENT
  Sex: Female
  Weight: 52 kg

DRUGS (1)
  1. HYDERGINE [Suspect]
     Indication: MEMORY IMPAIRMENT
     Dosage: 4.5 MG
     Route: 048
     Dates: start: 20080829

REACTIONS (2)
  - PRURITUS [None]
  - SWELLING [None]
